FAERS Safety Report 7240869-9 (Version None)
Quarter: 2011Q1

REPORT INFORMATION
  Report Type: 
  Country: None (occurrence: None)
  Receive Date: 20110120
  Receipt Date: 20110120
  Transmission Date: 20110831
  Serious: No
  Sender: FDA-Public Use
  Company Number: None

PATIENT
  Age: 51 Year
  Sex: Female
  Weight: 54.4316 kg

DRUGS (1)
  1. BONIVA [Suspect]
     Indication: OSTEOPOROSIS
     Dosage: ONE TABLET ONCE MONTHLY ORAL
     Route: 048
     Dates: start: 20100908

REACTIONS (3)
  - MUSCLE SPASMS [None]
  - GROIN PAIN [None]
  - ARTHRALGIA [None]
